FAERS Safety Report 19732702 (Version 1)
Quarter: 2021Q3

REPORT INFORMATION
  Report Type: Other
  Country: US (occurrence: US)
  Receive Date: 20210823
  Receipt Date: 20210823
  Transmission Date: 20211014
  Serious: Yes (Other)
  Sender: FDA-Public Use
  Company Number: US-WES PHARMA INC-2115473

PATIENT
  Age: 98 Year
  Sex: Female

DRUGS (1)
  1. HYDROCODONE BITARTRATE AND ACETAMINOPHEN [Suspect]
     Active Substance: ACETAMINOPHEN\HYDROCODONE BITARTRATE
     Indication: CANCER PAIN
     Route: 065

REACTIONS (2)
  - Hallucination [Unknown]
  - Drug ineffective [Unknown]
